FAERS Safety Report 4594840-6 (Version None)
Quarter: 2005Q1

REPORT INFORMATION
  Report Type: 
  Country: None (occurrence: None)
  Receive Date: 20050223
  Receipt Date: 20050211
  Transmission Date: 20050727
  Serious: Yes (Hospitalization, Other)
  Sender: FDA-Public Use
  Company Number: GBWYE393702FEB05

PATIENT
  Sex: Female

DRUGS (2)
  1. EFFEXOR XR [Suspect]
     Dosage: 28 X 75 MG AND 28 X 150 MG
  2. ALCOHOL (ETHANOL) [Concomitant]

REACTIONS (9)
  - AGITATION [None]
  - CLONIC CONVULSION [None]
  - DISTURBANCE IN ATTENTION [None]
  - MOOD DISORDER DUE TO A GENERAL MEDICAL CONDITION [None]
  - OVERDOSE [None]
  - PSYCHOTIC DISORDER [None]
  - PYREXIA [None]
  - RESTLESSNESS [None]
  - TACHYCARDIA [None]
